FAERS Safety Report 16062062 (Version 4)
Quarter: 2022Q1

REPORT INFORMATION
  Report Type: Spontaneous
  Country: US (occurrence: US)
  Receive Date: 20190312
  Receipt Date: 20220309
  Transmission Date: 20220424
  Serious: No
  Sender: FDA-Public Use
  Company Number: US-PFIZER INC-2019101454

PATIENT
  Age: 72 Year
  Sex: Male

DRUGS (1)
  1. XELJANZ XR [Suspect]
     Active Substance: TOFACITINIB CITRATE
     Dosage: 11 MG, UNK
     Dates: start: 20180531

REACTIONS (7)
  - Drug ineffective [Unknown]
  - Acrochordon [Unknown]
  - Pain of skin [Unknown]
  - Acne [Unknown]
  - Constipation [Unknown]
  - Asthenia [Unknown]
  - Condition aggravated [Not Recovered/Not Resolved]
